FAERS Safety Report 24296165 (Version 2)
Quarter: 2024Q4

REPORT INFORMATION
  Report Type: Spontaneous
  Country: SE (occurrence: SE)
  Receive Date: 20240909
  Receipt Date: 20241016
  Transmission Date: 20250115
  Serious: Yes (Other)
  Sender: NOVO NORDISK
  Company Number: SE-NOVOPROD-1275646

PATIENT
  Age: 50 Year
  Sex: Female

DRUGS (1)
  1. SAXENDA [Suspect]
     Active Substance: LIRAGLUTIDE
     Indication: Obesity
     Dosage: UNK
     Dates: end: 20230131

REACTIONS (1)
  - Graves^ disease [Unknown]

NARRATIVE: CASE EVENT DATE: 20221220
